FAERS Safety Report 20442184 (Version 2)
Quarter: 2022Q1

REPORT INFORMATION
  Report Type: Spontaneous
  Country: US (occurrence: US)
  Receive Date: 20220208
  Receipt Date: 20220222
  Transmission Date: 20220423
  Serious: No
  Sender: FDA-Public Use
  Company Number: US-GLAXOSMITHKLINE-US2022AMR021252

PATIENT

DRUGS (2)
  1. SOTROVIMAB [Suspect]
     Active Substance: SOTROVIMAB
     Indication: Product used for unknown indication
     Dosage: UNK, QTY 3
  2. SOTROVIMAB [Suspect]
     Active Substance: SOTROVIMAB
     Dosage: UNK, QTY 12

REACTIONS (1)
  - Product storage error [Unknown]
